FAERS Safety Report 12594269 (Version 4)
Quarter: 2016Q3

REPORT INFORMATION
  Report Type: Report from Study
  Country: JP (occurrence: JP)
  Receive Date: 20160726
  Receipt Date: 20160908
  Transmission Date: 20161109
  Serious: Yes (Death, Other)
  Sender: FDA-Public Use
  Company Number: JP-GILEAD-2016-0225127

PATIENT
  Age: 82 Year
  Sex: Female

DRUGS (1)
  1. AMBRISENTAN [Suspect]
     Active Substance: AMBRISENTAN
     Indication: PULMONARY ARTERIAL HYPERTENSION
     Dosage: UNK
     Route: 048
     Dates: start: 20160106, end: 20160203

REACTIONS (2)
  - Oxygen saturation decreased [Unknown]
  - Cardiac failure [Fatal]

NARRATIVE: CASE EVENT DATE: 20160125
